FAERS Safety Report 7312667-9 (Version None)
Quarter: 2011Q1

REPORT INFORMATION
  Report Type: 
  Country: None (occurrence: None)
  Receive Date: 20110224
  Receipt Date: 20101104
  Transmission Date: 20110831
  Serious: No
  Sender: FDA-Public Use
  Company Number: US-ASTRAZENECA-2010SE52972

PATIENT
  Age: 38 Year
  Sex: Male
  Weight: 75.7 kg

DRUGS (2)
  1. VIMOVO [Suspect]
     Dosage: ONCE A DAY
     Route: 048
     Dates: start: 20101103
  2. VIMOVO [Suspect]
     Indication: PAIN
     Route: 048
     Dates: start: 20101103

REACTIONS (2)
  - ABDOMINAL DISCOMFORT [None]
  - INCORRECT DOSE ADMINISTERED [None]
